FAERS Safety Report 9529332 (Version 1)
Quarter: 2013Q3

REPORT INFORMATION
  Report Type: Spontaneous
  Country: US (occurrence: US)
  Receive Date: 20130917
  Receipt Date: 20130917
  Transmission Date: 20140515
  Serious: Yes (Hospitalization)
  Sender: FDA-Public Use
  Company Number: US-PERRIGO-13US009300

PATIENT
  Age: 16 Month
  Sex: Female

DRUGS (1)
  1. IBUPROFEN 200 MG 604 [Suspect]
     Indication: ACCIDENTAL OVERDOSE
     Dosage: UNK, SINGLE
     Route: 048

REACTIONS (7)
  - Accidental overdose [Recovered/Resolved]
  - Mental status changes [Recovered/Resolved]
  - Somnolence [Recovered/Resolved]
  - Metabolic acidosis [Recovered/Resolved]
  - Respiratory distress [Recovered/Resolved]
  - Gastritis [Recovered/Resolved]
  - Drug level above therapeutic [Recovered/Resolved]
